FAERS Safety Report 6589348-2 (Version None)
Quarter: 2010Q1

REPORT INFORMATION
  Report Type: 
  Country: None (occurrence: None)
  Receive Date: 20100218
  Receipt Date: 20100205
  Transmission Date: 20100710
  Serious: Yes (Hospitalization)
  Sender: FDA-Public Use
  Company Number: BR-SANOFI-AVENTIS-2010SA007292

PATIENT
  Sex: Female

DRUGS (2)
  1. OXALIPLATIN [Suspect]
     Route: 041
     Dates: start: 20091130, end: 20091130
  2. FLUOROURACIL [Suspect]
     Route: 042
     Dates: start: 20091130, end: 20091130

REACTIONS (5)
  - ABDOMINAL PAIN UPPER [None]
  - NAUSEA [None]
  - ODYNOPHAGIA [None]
  - PEPTIC ULCER [None]
  - VOMITING [None]
